FAERS Safety Report 26006021 (Version 1)
Quarter: 2025Q4

REPORT INFORMATION
  Report Type: Report from Study
  Country: ZA (occurrence: ZA)
  Receive Date: 20251106
  Receipt Date: 20251106
  Transmission Date: 20260118
  Serious: Yes (Other)
  Sender: ROCHE
  Company Number: ZA-ROCHE-10000161779

PATIENT
  Age: 76 Year
  Sex: Male

DRUGS (4)
  1. VABYSMO [Suspect]
     Active Substance: FARICIMAB-SVOA
     Indication: Macular degeneration
     Route: 050
     Dates: start: 20240312
  2. VABYSMO [Suspect]
     Active Substance: FARICIMAB-SVOA
     Route: 050
  3. VABYSMO [Suspect]
     Active Substance: FARICIMAB-SVOA
     Route: 050
     Dates: start: 20240312
  4. VABYSMO [Suspect]
     Active Substance: FARICIMAB-SVOA
     Route: 050
     Dates: start: 20240312

REACTIONS (2)
  - Optical coherence tomography abnormal [Unknown]
  - Retinal thickening [Unknown]

NARRATIVE: CASE EVENT DATE: 20241218
